FAERS Safety Report 4332472-5 (Version None)
Quarter: 2004Q2

REPORT INFORMATION
  Report Type: 
  Country: None (occurrence: None)
  Receive Date: 20040401
  Receipt Date: 20040322
  Transmission Date: 20050107
  Serious: Yes (Other)
  Sender: FDA-Public Use
  Company Number: HQWYE532322JAN04

PATIENT

DRUGS (1)
  1. CORDAREX (AMIODARONE, UNSPEC) [Suspect]

REACTIONS (1)
  - SYSTEMIC LUPUS ERYTHEMATOSUS [None]
